FAERS Safety Report 5297257-4 (Version None)
Quarter: 2007Q2

REPORT INFORMATION
  Report Type: 
  Country: None (occurrence: None)
  Receive Date: 20070416
  Receipt Date: 20070405
  Transmission Date: 20071010
  Serious: Yes (Other)
  Sender: FDA-Public Use
  Company Number: US-JNJFOC-20070401881

PATIENT
  Age: 48 Year
  Sex: Male
  Weight: 95.26 kg

DRUGS (1)
  1. LEVAQUIN [Suspect]
     Indication: PHARYNGOLARYNGEAL PAIN
     Route: 048

REACTIONS (6)
  - ARTHRALGIA [None]
  - BURNING SENSATION [None]
  - CHEST PAIN [None]
  - HEADACHE [None]
  - PAIN IN EXTREMITY [None]
  - PSYCHOTIC DISORDER [None]
